FAERS Safety Report 7902919-3 (Version None)
Quarter: 2011Q4

REPORT INFORMATION
  Report Type: 
  Country: None (occurrence: None)
  Receive Date: 20111109
  Receipt Date: 20111013
  Transmission Date: 20120403
  Serious: Yes (Other)
  Sender: FDA-Public Use
  Company Number: CA-JNJFOC-20110903539

PATIENT
  Sex: Male
  Weight: 86 kg

DRUGS (3)
  1. REMICADE [Suspect]
     Indication: CROHN'S DISEASE
     Dosage: DOSE STRENGTH 5 MG/KG
     Route: 042
     Dates: start: 20080701
  2. IMURAN [Concomitant]
     Route: 048
  3. REMICADE [Suspect]
     Route: 042
     Dates: start: 20060101

REACTIONS (1)
  - HERPES ZOSTER [None]
